FAERS Safety Report 17256182 (Version 2)
Quarter: 2020Q1

REPORT INFORMATION
  Report Type: Spontaneous
  Country: DE (occurrence: DE)
  Receive Date: 20200110
  Receipt Date: 20200116
  Transmission Date: 20200409
  Serious: Yes (Other)
  Sender: FDA-Public Use
  Company Number: DE-GLAXOSMITHKLINE-DE2020003712

PATIENT
  Age: 3 Year
  Sex: Male
  Weight: 14 kg

DRUGS (1)
  1. SALBUTAMOL [Suspect]
     Active Substance: ALBUTEROL
     Indication: BRONCHIAL OBSTRUCTION
     Dosage: 4 DROPS IN 3ML SALINE
     Route: 055
     Dates: start: 20191223, end: 20191228

REACTIONS (3)
  - Hallucinations, mixed [Recovering/Resolving]
  - Sleep disorder [Recovering/Resolving]
  - Restlessness [Recovering/Resolving]

NARRATIVE: CASE EVENT DATE: 20191225
